FAERS Safety Report 5941818-3 (Version None)
Quarter: 2008Q4

REPORT INFORMATION
  Report Type: 
  Country: None (occurrence: None)
  Receive Date: 20081031
  Receipt Date: 20081024
  Transmission Date: 20090506
  Serious: Yes (Hospitalization, Other)
  Sender: FDA-Public Use
  Company Number: 2008BI028628

PATIENT
  Sex: Female

DRUGS (1)
  1. AVONEX [Suspect]
     Indication: MULTIPLE SCLEROSIS
     Dosage: IM
     Route: 030

REACTIONS (6)
  - BLOOD DISORDER [None]
  - CATHETER RELATED INFECTION [None]
  - INFECTION [None]
  - MUSCLE DISORDER [None]
  - NEOPLASM [None]
  - WHITE BLOOD CELL COUNT DECREASED [None]
